FAERS Safety Report 7302798-1 (Version None)
Quarter: 2011Q1

REPORT INFORMATION
  Report Type: 
  Country: None (occurrence: None)
  Receive Date: 20110218
  Receipt Date: 20101129
  Transmission Date: 20110831
  Serious: No
  Sender: FDA-Public Use
  Company Number: US-BAYER-2010-007180

PATIENT
  Sex: Male
  Weight: 79 kg

DRUGS (2)
  1. ANTIHYPERTENSIVES [Concomitant]
     Indication: HYPERTENSION
  2. ALEVE (CAPLET) [Suspect]
     Indication: ARTHRALGIA
     Dosage: DAILY DOSE 2 DF

REACTIONS (1)
  - NO ADVERSE EVENT [None]
